FAERS Safety Report 20348312 (Version 1)
Quarter: 2022Q1

REPORT INFORMATION
  Report Type: Other
  Country: US (occurrence: None)
  Receive Date: 20220119
  Receipt Date: 20220119
  Transmission Date: 20220423
  Serious: Yes (Other)
  Sender: FDA-Public Use
  Company Number: US-ROCHE-2998658

PATIENT
  Sex: Female
  Weight: 74.910 kg

DRUGS (13)
  1. OCREVUS [Suspect]
     Active Substance: OCRELIZUMAB
     Indication: Relapsing-remitting multiple sclerosis
     Dosage: FREQUENCY AROUND 5 MONTHS JUST LESS THAN 6 MONTHS; 2-3 WEEKS BEFORE 6?MONTHS ;
     Route: 042
  2. METHENAMINE HIPPURATE [Concomitant]
     Active Substance: METHENAMINE HIPPURATE
     Dosage: YES
     Route: 048
  3. TIZANIDINE [Concomitant]
     Active Substance: TIZANIDINE
     Indication: Muscle spasticity
     Dosage: YES
     Route: 048
  4. DULOXETINE [Concomitant]
     Active Substance: DULOXETINE
     Indication: Anxiety
     Dosage: YES
     Route: 048
  5. ZETIA [Concomitant]
     Active Substance: EZETIMIBE
     Indication: Blood cholesterol increased
     Dosage: YES
     Route: 048
  6. PANTOPRAZOLE [Concomitant]
     Active Substance: PANTOPRAZOLE
     Indication: Gastrooesophageal reflux disease
     Dosage: YES
     Route: 048
  7. COVID-19 VACCINE [Concomitant]
     Dosage: NO
     Dates: start: 202103
  8. COVID-19 VACCINE [Concomitant]
     Dates: start: 202110
  9. MIDODRINE [Concomitant]
     Active Substance: MIDODRINE
     Dosage: .5 MG  AS REQUIRED IF BLOOD PRESSURE GOES BELOW 85-90 ;ONGOING: YES
     Route: 048
  10. FLUDROCORTISONE [Concomitant]
     Active Substance: FLUDROCORTISONE
     Dosage: .1 MG ;ONGOING: YES
     Route: 048
     Dates: start: 202107
  11. VITAMIN D3 [Concomitant]
     Active Substance: CHOLECALCIFEROL
     Indication: Multiple sclerosis
     Dosage: DOSE ALSO PROVIDED AS 25 MCG. ;ONGOING: YES
     Route: 048
  12. VITAMIN B12 [Concomitant]
     Active Substance: CYANOCOBALAMIN
     Dosage: YES
     Route: 048
  13. CRANBERRY [Concomitant]
     Active Substance: CRANBERRY
     Dosage: YES
     Route: 048

REACTIONS (7)
  - COVID-19 pneumonia [Recovered/Resolved]
  - Dehydration [Recovered/Resolved]
  - Orthostatic hypotension [Not Recovered/Not Resolved]
  - Arthritis [Not Recovered/Not Resolved]
  - Multiple sclerosis relapse [Recovered/Resolved]
  - Cystitis [Recovered/Resolved]
  - Cough [Not Recovered/Not Resolved]

NARRATIVE: CASE EVENT DATE: 20200101
